FAERS Safety Report 15448672 (Version 4)
Quarter: 2019Q2

REPORT INFORMATION
  Report Type: Spontaneous
  Country: US (occurrence: US)
  Receive Date: 20180929
  Receipt Date: 20190507
  Transmission Date: 20190711
  Serious: Yes (Hospitalization, Other)
  Sender: FDA-Public Use
  Company Number: US-SA-2018SA268654

PATIENT
  Age: 70 Year
  Sex: Female

DRUGS (2)
  1. LEMTRADA [Suspect]
     Active Substance: ALEMTUZUMAB
     Dosage: 12MG
     Route: 041
     Dates: start: 20171218, end: 20171222
  2. AUBAGIO [Concomitant]
     Active Substance: TERIFLUNOMIDE
     Dosage: 14 MG, QD
     Route: 048
     Dates: start: 201606, end: 201712

REACTIONS (8)
  - Haemorrhage [Unknown]
  - Blood urine present [Unknown]
  - Gastrointestinal haemorrhage [Recovered/Resolved]
  - Red blood cell count abnormal [Unknown]
  - Immune thrombocytopenic purpura [Unknown]
  - White blood cell count abnormal [Unknown]
  - Contusion [Unknown]
  - Platelet count decreased [Unknown]

NARRATIVE: CASE EVENT DATE: 20180322
